FAERS Safety Report 25853351 (Version 1)
Quarter: 2025Q3

REPORT INFORMATION
  Report Type: Spontaneous
  Country: US (occurrence: None)
  Receive Date: 20250926
  Receipt Date: 20250926
  Transmission Date: 20251020
  Serious: Yes (unspecified)
  Sender: FDA-CTU
  Company Number: None

PATIENT
  Age: 79 Year
  Sex: Male
  Weight: 96.75 kg

DRUGS (13)
  1. AMIODARONE [Suspect]
     Active Substance: AMIODARONE
     Indication: Atrial fibrillation
     Route: 048
     Dates: start: 20231201, end: 20240910
  2. Irbesarten/hctz [Concomitant]
  3. PRAVASTATIN [Concomitant]
     Active Substance: PRAVASTATIN
  4. SODIUM [Concomitant]
     Active Substance: SODIUM
  5. FARXIGA [Concomitant]
     Active Substance: DAPAGLIFLOZIN PROPANEDIOL
  6. TRULICITY [Concomitant]
     Active Substance: DULAGLUTIDE
  7. PREGABALIN [Concomitant]
     Active Substance: PREGABALIN
  8. ELIQUIS [Concomitant]
     Active Substance: APIXABAN
  9. DILTIAZEM [Concomitant]
     Active Substance: DILTIAZEM
  10. Multeq [Concomitant]
  11. FISH OIL [Concomitant]
     Active Substance: FISH OIL
  12. VITAMINS [Concomitant]
     Active Substance: VITAMINS
  13. GINKGO [Concomitant]
     Active Substance: GINKGO

REACTIONS (5)
  - Visual impairment [None]
  - Papilloedema [None]
  - Visual field tests abnormal [None]
  - Papilloedema [None]
  - Blindness [None]

NARRATIVE: CASE EVENT DATE: 20240910
